FAERS Safety Report 9546466 (Version 2)
Quarter: 2014Q2

REPORT INFORMATION
  Report Type: Spontaneous
  Country: IT (occurrence: IT)
  Receive Date: 20130923
  Receipt Date: 20140429
  Transmission Date: 20141212
  Serious: Yes (Other)
  Sender: FDA-Public Use
  Company Number: IT-ACTAVIS-2013-16526

PATIENT
  Age: 40 Year
  Sex: Male

DRUGS (4)
  1. ALPRAZOLAM [Suspect]
     Indication: SUICIDE ATTEMPT
     Dosage: 50 MG, SINGLE
     Route: 048
     Dates: start: 20130826, end: 20130826
  2. TAVOR                              /00273201/ [Suspect]
     Indication: MENTAL DISORDER
     Dosage: 1 MG, TID
     Route: 048
     Dates: start: 20130802, end: 20130826
  3. ZYPREXA [Concomitant]
     Indication: PRODUCT USED FOR UNKNOWN INDICATION
     Dosage: 2.5 MG, QID
  4. CIPRALEX [Concomitant]
     Indication: PRODUCT USED FOR UNKNOWN INDICATION
     Dosage: 1 DF, DAILY

REACTIONS (3)
  - Suicide attempt [Recovering/Resolving]
  - Sopor [Recovering/Resolving]
  - Drug abuse [Recovering/Resolving]
